FAERS Safety Report 5628223-4 (Version None)
Quarter: 2008Q1

REPORT INFORMATION
  Report Type: 
  Country: None (occurrence: None)
  Receive Date: 20080215
  Receipt Date: 20080204
  Transmission Date: 20080703
  Serious: Yes (Hospitalization, Other)
  Sender: FDA-Public Use
  Company Number: US-PFIZER INC-2002054011

PATIENT
  Sex: Male
  Weight: 81.6 kg

DRUGS (7)
  1. DILANTIN [Suspect]
     Indication: CONVULSION
     Dosage: DAILY DOSE:350MG-FREQ:UNKNOWN
     Route: 048
  2. ANCEF [Interacting]
     Indication: SURGERY
     Dosage: TEXT:UNKNOWN-FREQ:UNKNOWN
     Route: 042
  3. TEGRETOL [Concomitant]
  4. VITAMIN E [Concomitant]
  5. VITAMIN CAP [Concomitant]
  6. VITAMINS [Concomitant]
  7. LOVASTATIN [Concomitant]

REACTIONS (4)
  - ANTICONVULSANT DRUG LEVEL BELOW THERAPEUTIC [None]
  - ARTHRITIS [None]
  - CONVULSION [None]
  - DRUG INTERACTION [None]
